FAERS Safety Report 23610279 (Version 3)
Quarter: 2024Q1

REPORT INFORMATION
  Report Type: Spontaneous
  Country: US (occurrence: US)
  Receive Date: 20240308
  Receipt Date: 20240329
  Transmission Date: 20240409
  Serious: Yes (Hospitalization)
  Sender: FDA-Public Use
  Company Number: US-SA-SAC20240305001463

PATIENT
  Age: 24 Year
  Sex: Male

DRUGS (1)
  1. ALTUVIIIO [Suspect]
     Active Substance: EFANESOCTOCOG ALFA
     Dosage: 2665 U
     Route: 042

REACTIONS (8)
  - Haemorrhage [Unknown]
  - Haematoma [Unknown]
  - Lymphadenopathy [Unknown]
  - Localised oedema [Unknown]
  - Chest pain [Unknown]
  - Pain [Unknown]
  - Dysphagia [Unknown]
  - Dyspnoea [Unknown]

NARRATIVE: CASE EVENT DATE: 20240201
